FAERS Safety Report 13952957 (Version 1)
Quarter: 2017Q3

REPORT INFORMATION
  Report Type: Spontaneous
  Country: US (occurrence: US)
  Receive Date: 20170911
  Receipt Date: 20170911
  Transmission Date: 20171128
  Serious: No
  Sender: FDA-Public Use
  Company Number: US-009507513-1709USA000623

PATIENT
  Sex: Female

DRUGS (4)
  1. ENOXAPARIN SODIUM. [Concomitant]
     Active Substance: ENOXAPARIN SODIUM
  2. METRONIDAZOLE. [Concomitant]
     Active Substance: METRONIDAZOLE
  3. CYCLOPHOSPHAMIDE. [Concomitant]
     Active Substance: CYCLOPHOSPHAMIDE
  4. INTRON A [Suspect]
     Active Substance: INTERFERON ALFA-2B
     Indication: PANCREATIC CARCINOMA
     Dosage: 300,000 UNITS, TIW
     Route: 023
     Dates: start: 201703

REACTIONS (3)
  - Fatigue [Unknown]
  - Somnolence [Unknown]
  - Incorrect disposal of product [Unknown]

NARRATIVE: CASE EVENT DATE: 2017
